FAERS Safety Report 17256112 (Version 4)
Quarter: 2020Q2

REPORT INFORMATION
  Report Type: Report from Study
  Country: JP (occurrence: JP)
  Receive Date: 20200110
  Receipt Date: 20200401
  Transmission Date: 20200713
  Serious: Yes (Hospitalization, Other)
  Sender: FDA-Public Use
  Company Number: JP-GLAXOSMITHKLINE-JP2020JPN002579

PATIENT
  Age: 77 Year
  Sex: Male
  Weight: 48 kg

DRUGS (16)
  1. BLINDED ROPINIROLE HYDROCHLORIDE [Suspect]
     Active Substance: ROPINIROLE HYDROCHLORIDE
     Indication: AMYOTROPHIC LATERAL SCLEROSIS
     Dosage: 2 MG, 1D
     Route: 048
     Dates: start: 20190507, end: 2019
  2. REQUIP [Suspect]
     Active Substance: ROPINIROLE HYDROCHLORIDE
     Dosage: 10 MG, 1D
     Route: 048
     Dates: start: 201912, end: 201912
  3. REQUIP [Suspect]
     Active Substance: ROPINIROLE HYDROCHLORIDE
     Dosage: 14 MG, 1D
     Route: 048
     Dates: start: 201912, end: 201912
  4. PLACEBO [Suspect]
     Active Substance: UNSPECIFIED INGREDIENT
     Indication: AMYOTROPHIC LATERAL SCLEROSIS
     Dosage: 2 MG, 1D
     Route: 048
     Dates: start: 20190507, end: 2019
  5. BLINDED ROPINIROLE HYDROCHLORIDE [Suspect]
     Active Substance: ROPINIROLE HYDROCHLORIDE
     Indication: AMYOTROPHIC LATERAL SCLEROSIS
     Dosage: 2 MG, 1D
     Route: 048
     Dates: start: 20190507, end: 2019
  6. REQUIP [Suspect]
     Active Substance: ROPINIROLE HYDROCHLORIDE
     Dosage: 16 MG, 1D
     Route: 048
     Dates: start: 20200106
  7. REQUIP [Suspect]
     Active Substance: ROPINIROLE HYDROCHLORIDE
     Dosage: 16 MG, 1D
     Route: 048
     Dates: start: 20191226, end: 20200102
  8. MYSLEE TABLETS [Concomitant]
     Indication: INSOMNIA
     Dosage: 5 MG, QD
  9. PLACEBO [Suspect]
     Active Substance: UNSPECIFIED INGREDIENT
     Indication: AMYOTROPHIC LATERAL SCLEROSIS
     Dosage: 2 MG, 1D
     Route: 048
     Dates: start: 20190507, end: 2019
  10. REQUIP [Suspect]
     Active Substance: ROPINIROLE HYDROCHLORIDE
     Dosage: 6 MG, 1D
     Route: 048
     Dates: start: 201911, end: 201911
  11. REQUIP [Suspect]
     Active Substance: ROPINIROLE HYDROCHLORIDE
     Dosage: 12 MG, 1D
     Route: 048
     Dates: start: 201912, end: 201912
  12. REQUIP [Suspect]
     Active Substance: ROPINIROLE HYDROCHLORIDE
     Indication: AMYOTROPHIC LATERAL SCLEROSIS
     Dosage: 2 MG, 1D
     Route: 048
     Dates: start: 20191105, end: 201911
  13. REQUIP [Suspect]
     Active Substance: ROPINIROLE HYDROCHLORIDE
     Dosage: 4 MG, 1D
     Route: 048
     Dates: start: 201911, end: 201911
  14. REQUIP [Suspect]
     Active Substance: ROPINIROLE HYDROCHLORIDE
     Dosage: 8 MG, 1D
     Route: 048
     Dates: start: 201911, end: 201911
  15. BELSOMRA [Concomitant]
     Active Substance: SUVOREXANT
     Indication: INSOMNIA
     Dosage: 15 MG, QD
     Dates: start: 20190508
  16. RILUTEK [Concomitant]
     Active Substance: RILUZOLE
     Indication: AMYOTROPHIC LATERAL SCLEROSIS
     Dosage: 50 MG, BID

REACTIONS (5)
  - Hypothermia [Recovered/Resolved]
  - Somnolence [Not Recovered/Not Resolved]
  - Altered state of consciousness [Recovered/Resolved]
  - Pancytopenia [Recovered/Resolved]
  - Oedema peripheral [Not Recovered/Not Resolved]

NARRATIVE: CASE EVENT DATE: 20191106
